FAERS Safety Report 5254720-X (Version None)
Quarter: 2007Q1

REPORT INFORMATION
  Report Type: 
  Country: None (occurrence: None)
  Receive Date: 20070227
  Receipt Date: 20070214
  Transmission Date: 20070707
  Serious: Yes (Hospitalization)
  Sender: FDA-Public Use
  Company Number: 236677

PATIENT
  Age: 4 Year
  Sex: Female
  Weight: 23.6 kg

DRUGS (7)
  1. NUTROPIN AQ [Suspect]
     Indication: HYPOPITUITARISM
     Dosage: 0.5 MG, 7/WEEK, UNK
     Dates: start: 20020704
  2. LEVOXYL [Concomitant]
  3. CLONIDINE [Concomitant]
  4. CORTEF [Concomitant]
  5. PHENOBARB (PHENOBARBITAL) [Concomitant]
  6. DRUG (GENERIC COMPONENT(S) NOT KNOWN) [Concomitant]
  7. DDAVP [Concomitant]

REACTIONS (3)
  - INCISION SITE ABSCESS [None]
  - INCISION SITE CELLULITIS [None]
  - INCISION SITE ERYTHEMA [None]
